FAERS Safety Report 7235701-3 (Version None)
Quarter: 2011Q1

REPORT INFORMATION
  Report Type: 
  Country: None (occurrence: None)
  Receive Date: 20110120
  Receipt Date: 20110117
  Transmission Date: 20110831
  Serious: Yes (Other)
  Sender: FDA-Public Use
  Company Number: IT-PFIZER INC-2008156587

PATIENT
  Age: 58 Year
  Sex: Male

DRUGS (4)
  1. SUNITINIB MALATE [Suspect]
     Indication: METASTATIC RENAL CELL CARCINOMA
     Dosage: 50 MG DAILY FOR 4 WEEKS EVERY 6 WEEKS
     Route: 048
     Dates: start: 20060711
  2. SUNITINIB MALATE [Suspect]
     Dosage: 37.5 MG DAILY FOR 4 WEEKS EVERY 6 WEEKS
     Route: 048
     Dates: start: 20060101, end: 20070401
  3. ZOLEDRONIC ACID [Suspect]
     Dosage: UNK
     Route: 042
  4. SUNITINIB MALATE [Suspect]
     Dosage: UNK
     Route: 048
     Dates: start: 20071001, end: 20070101

REACTIONS (1)
  - OSTEONECROSIS OF JAW [None]
